FAERS Safety Report 4765629-X (Version None)
Quarter: 2005Q3

REPORT INFORMATION
  Report Type: 
  Country: None (occurrence: None)
  Receive Date: 20050906
  Receipt Date: 20050818
  Transmission Date: 20060218
  Serious: Yes (Other)
  Sender: FDA-Public Use
  Company Number: FR_050806922

PATIENT
  Age: 65 Year
  Sex: Female

DRUGS (8)
  1. FORTEO [Suspect]
     Indication: OSTEOPOROSIS
     Dosage: 20 UG DAY
     Dates: start: 20050404, end: 20050811
  2. FLECAINIDE ACETATE [Concomitant]
  3. KARDEGIC (ACETYLSALICYLATE LYSINE) [Concomitant]
  4. RAMIPRIL [Concomitant]
  5. ARAVA [Concomitant]
  6. CORTISONE ACETATE TAB [Concomitant]
  7. PREDNISONE [Concomitant]
  8. LAMALINE [Concomitant]

REACTIONS (5)
  - DIZZINESS [None]
  - FATIGUE [None]
  - MALAISE [None]
  - PULMONARY EMBOLISM [None]
  - VERTIGO [None]
